FAERS Safety Report 13421109 (Version 1)
Quarter: 2017Q2

REPORT INFORMATION
  Report Type: Spontaneous
  Country: US (occurrence: US)
  Receive Date: 20170410
  Receipt Date: 20170410
  Transmission Date: 20170830
  Serious: No
  Sender: FDA-Public Use
  Company Number: US-ENDO PHARMACEUTICALS INC-2016-004612

PATIENT
  Age: 85 Year
  Sex: Female
  Weight: 93.98 kg

DRUGS (9)
  1. FUROSEMIDE TABLETS 40MG [Concomitant]
     Active Substance: FUROSEMIDE
     Indication: OEDEMA
  2. POTASSIUM [Concomitant]
     Active Substance: POTASSIUM
     Indication: PRODUCT USED FOR UNKNOWN INDICATION
  3. METOPROLOL. [Concomitant]
     Active Substance: METOPROLOL
     Indication: CARDIAC DISORDER
  4. FUROSEMIDE TABLETS 40MG [Concomitant]
     Active Substance: FUROSEMIDE
     Indication: FLUID RETENTION
  5. COLACE [Concomitant]
     Active Substance: DOCUSATE SODIUM
     Indication: UNEVALUABLE EVENT
  6. METFORMIN [Concomitant]
     Active Substance: METFORMIN HYDROCHLORIDE
     Indication: DIABETES MELLITUS
  7. ASPIRIN. [Concomitant]
     Active Substance: ASPIRIN
     Indication: COAGULOPATHY
  8. PRIMIDONE TABLETS 50MG [Suspect]
     Active Substance: PRIMIDONE
     Indication: SEIZURE
     Route: 048
     Dates: start: 20160716
  9. FUROSEMIDE TABLETS 40MG [Concomitant]
     Active Substance: FUROSEMIDE

REACTIONS (6)
  - Somnolence [Not Recovered/Not Resolved]
  - Rhinorrhoea [Not Recovered/Not Resolved]
  - Visual impairment [Not Recovered/Not Resolved]
  - Asthenia [Unknown]
  - Sneezing [Recovered/Resolved]
  - Fatigue [Unknown]

NARRATIVE: CASE EVENT DATE: 201607
